FAERS Safety Report 4968072-3 (Version None)
Quarter: 2006Q2

REPORT INFORMATION
  Report Type: 
  Country: None (occurrence: None)
  Receive Date: 20060410
  Receipt Date: 20060328
  Transmission Date: 20061013
  Serious: Yes (Hospitalization)
  Sender: FDA-Public Use
  Company Number: NL-ROCHE-442498

PATIENT
  Age: 70 Year
  Sex: Male

DRUGS (8)
  1. CAPECITABINE [Suspect]
     Dosage: ADMINISTERED ON DAYS 1-14 OF A THREE WEEK CYCLE.
     Route: 048
     Dates: start: 20051028
  2. AVASTIN [Suspect]
     Dosage: ADMINISTERED ON DAY 1 OF THE CYCLE.
     Route: 042
     Dates: start: 20051028
  3. OXALIPLATIN [Suspect]
     Dosage: ADMINISTERED ON DAY 1 OF THE CYCLE.
     Route: 042
     Dates: start: 20051028
  4. VITAMIN B COMPLEX CAP [Concomitant]
  5. BISOPROLOL FUMARATE [Concomitant]
  6. NOVASTAN [Concomitant]
  7. LOPERAMIDE [Concomitant]
  8. METOCLOPRAMIDE [Concomitant]

REACTIONS (5)
  - ANOREXIA [None]
  - FALL [None]
  - ILL-DEFINED DISORDER [None]
  - OESOPHAGEAL CANDIDIASIS [None]
  - WEIGHT DECREASED [None]
